FAERS Safety Report 16430666 (Version 2)
Quarter: 2019Q2

REPORT INFORMATION
  Report Type: Report from Study
  Country: US (occurrence: US)
  Receive Date: 20190614
  Receipt Date: 20190618
  Transmission Date: 20190711
  Serious: Yes (Death, Hospitalization)
  Sender: FDA-Public Use
  Company Number: US-TESARO-2018-TSO1619-US

PATIENT
  Sex: Female

DRUGS (1)
  1. VARUBI [Suspect]
     Active Substance: ROLAPITANT
     Indication: PRODUCT USED FOR UNKNOWN INDICATION
     Dosage: 180 MG, Q2 WEEKS
     Route: 065
     Dates: start: 20181019, end: 201810

REACTIONS (3)
  - Disease progression [Unknown]
  - Death [Fatal]
  - Brain operation [Unknown]

NARRATIVE: CASE EVENT DATE: 201810
